FAERS Safety Report 6115666-8 (Version None)
Quarter: 2009Q1

REPORT INFORMATION
  Report Type: 
  Country: None (occurrence: None)
  Receive Date: 20090313
  Receipt Date: 20090309
  Transmission Date: 20090719
  Serious: No
  Sender: FDA-Public Use
  Company Number: US-B.I. PHARMACEUTICALS,INC./RIDGEFIELD-2009-BP-02996BP

PATIENT
  Sex: Female

DRUGS (3)
  1. CATAPRES-TTS-1 [Suspect]
     Indication: HYPERTENSION
     Dosage: .3MG
     Route: 062
     Dates: start: 20080301
  2. DIOVAN [Concomitant]
     Indication: HYPERTENSION
  3. CARTIA XT [Concomitant]
     Indication: HYPERTENSION

REACTIONS (1)
  - BLOOD PRESSURE INCREASED [None]
